FAERS Safety Report 9373780 (Version 2)
Quarter: 2014Q1

REPORT INFORMATION
  Report Type: Report from Study
  Country: GB (occurrence: GB)
  Receive Date: 20130628
  Receipt Date: 20140120
  Transmission Date: 20141002
  Serious: Yes (Hospitalization)
  Sender: FDA-Public Use
  Company Number: GB-ROCHE-1241033

PATIENT
  Age: 72 Year
  Sex: Female

DRUGS (2)
  1. RANIBIZUMAB [Suspect]
     Indication: PRODUCT USED FOR UNKNOWN INDICATION
     Route: 050
     Dates: start: 20121006
  2. RANIBIZUMAB [Suspect]
     Route: 050
     Dates: start: 20121018

REACTIONS (5)
  - Head banging [Recovering/Resolving]
  - Convulsion [Recovering/Resolving]
  - Paraesthesia [Unknown]
  - Arthritis [Unknown]
  - Dizziness [Unknown]
